FAERS Safety Report 16249129 (Version 1)
Quarter: 2019Q2

REPORT INFORMATION
  Report Type: Spontaneous
  Country: FR (occurrence: FR)
  Receive Date: 20190429
  Receipt Date: 20190429
  Transmission Date: 20190711
  Serious: Yes (Other)
  Sender: FDA-Public Use
  Company Number: FR-ACCORD-124340

PATIENT
  Age: 79 Year
  Sex: Male
  Weight: 85 kg

DRUGS (1)
  1. CARBOPLATIN ACCORD [Suspect]
     Active Substance: CARBOPLATIN
     Indication: LUNG ADENOCARCINOMA
     Dosage: 10 MG/ML
     Route: 041
     Dates: start: 20190306, end: 20190306

REACTIONS (2)
  - Erythema [Recovering/Resolving]
  - Administration site extravasation [Recovering/Resolving]

NARRATIVE: CASE EVENT DATE: 20190306
